FAERS Safety Report 23267956 (Version 1)
Quarter: 2023Q4

REPORT INFORMATION
  Report Type: Spontaneous
  Country: DE (occurrence: DE)
  Receive Date: 20231206
  Receipt Date: 20231206
  Transmission Date: 20240109
  Serious: Yes (Other)
  Sender: FDA-Public Use
  Company Number: DE-IGSA-BIG0026639

PATIENT
  Age: 52 Year
  Sex: Female
  Weight: 75 kg

DRUGS (4)
  1. FOSTAMATINIB DISODIUM [Suspect]
     Active Substance: FOSTAMATINIB DISODIUM
     Indication: Immune thrombocytopenia
     Dosage: 100 MG, BID
     Route: 048
     Dates: start: 20231028
  2. PRAMIPEXOLE [Concomitant]
     Active Substance: PRAMIPEXOLE
     Indication: Restless legs syndrome
     Dosage: 18 MG, QD
     Route: 048
     Dates: start: 2022
  3. PREDNISOLONE [Concomitant]
     Active Substance: PREDNISOLONE
     Indication: Immune thrombocytopenia
     Dosage: 10 MG AND 20 MG ALTERNATELY PER DAY (15 MG DAILY)
     Route: 048
     Dates: start: 202301
  4. PREDNISOLONE [Concomitant]
     Active Substance: PREDNISOLONE
     Dosage: 10 MG AND 20 MG ALTERNATELY PER DAY (15 MG DAILY)
     Route: 048
     Dates: start: 202309

REACTIONS (6)
  - Headache [Unknown]
  - Hyperhidrosis [Recovered/Resolved]
  - Chest discomfort [Unknown]
  - Gastrointestinal pain [Recovered/Resolved]
  - Hypertension [Recovering/Resolving]
  - Diarrhoea [Recovered/Resolved]

NARRATIVE: CASE EVENT DATE: 20231001
